FAERS Safety Report 8814271 (Version 3)
Quarter: 2012Q4

REPORT INFORMATION
  Report Type: 
  Country: US (occurrence: US)
  Receive Date: 20120928
  Receipt Date: 20121107
  Transmission Date: 20130627
  Serious: Yes (Hospitalization)
  Sender: FDA-Public Use
  Company Number: US-BAYER-2012-097463

PATIENT
  Age: 26 Year
  Sex: Female
  Weight: 65.76 kg

DRUGS (4)
  1. YAZ [Suspect]
     Indication: CONTRACEPTION
     Dosage: UNK
     Dates: start: 201007, end: 201109
  2. GIANVI [Suspect]
     Indication: CONTRACEPTION
     Dosage: UNK
     Dates: start: 201007, end: 201109
  3. MORPHINE [Concomitant]
     Indication: PAIN
  4. IBUPROFEN [Concomitant]

REACTIONS (11)
  - Pulmonary embolism [None]
  - Thrombosis [None]
  - Emotional distress [None]
  - Injury [None]
  - General physical health deterioration [None]
  - Anxiety [None]
  - Anhedonia [None]
  - Pain [None]
  - Chest discomfort [None]
  - Fear [None]
  - Pain [None]
